FAERS Safety Report 10918939 (Version 3)
Quarter: 2017Q3

REPORT INFORMATION
  Report Type: Spontaneous
  Country: US (occurrence: US)
  Receive Date: 20150316
  Receipt Date: 20170721
  Transmission Date: 20171127
  Serious: Yes (Other)
  Sender: FDA-Public Use
  Company Number: US-ASTELLAS-2015US003286

PATIENT
  Age: 52 Year
  Sex: Male

DRUGS (1)
  1. XTANDI [Suspect]
     Active Substance: ENZALUTAMIDE
     Indication: PROSTATE CANCER
     Route: 048
     Dates: start: 20141209

REACTIONS (16)
  - Cold sweat [Unknown]
  - Pain in extremity [Unknown]
  - Endodontic procedure [Not Recovered/Not Resolved]
  - Arthralgia [Unknown]
  - Confusional state [Unknown]
  - Tonsillectomy [Unknown]
  - Stomatitis [Unknown]
  - Headache [Unknown]
  - Prostatic specific antigen increased [Not Recovered/Not Resolved]
  - Renal pain [Unknown]
  - Myalgia [Unknown]
  - Drug dose omission [Recovered/Resolved]
  - Eagle^s syndrome [Unknown]
  - Feeling abnormal [Unknown]
  - Vision blurred [Unknown]
  - Pharyngitis streptococcal [Recovered/Resolved]

NARRATIVE: CASE EVENT DATE: 20150101
